FAERS Safety Report 7718691-6 (Version None)
Quarter: 2011Q3

REPORT INFORMATION
  Report Type: 
  Country: None (occurrence: None)
  Receive Date: 20110830
  Receipt Date: 20110818
  Transmission Date: 20111222
  Serious: Yes (Hospitalization)
  Sender: FDA-Public Use
  Company Number: DE-ELI_LILLY_AND_COMPANY-DE201105007435

PATIENT
  Age: 10 Year
  Sex: Male
  Weight: 22 kg

DRUGS (1)
  1. STRATTERA [Suspect]
     Indication: ATTENTION DEFICIT/HYPERACTIVITY DISORDER
     Dosage: 18 MG, UNK
     Dates: start: 20091101, end: 20110501

REACTIONS (4)
  - THROMBOCYTOPENIA [None]
  - INFECTIOUS MONONUCLEOSIS [None]
  - CHILLS [None]
  - DRUG WITHDRAWAL SYNDROME [None]
